FAERS Safety Report 8546276-0 (Version None)
Quarter: 2012Q3

REPORT INFORMATION
  Report Type: 
  Country: None (occurrence: None)
  Receive Date: 20120727
  Receipt Date: 20120723
  Transmission Date: 20120928
  Serious: Yes (Hospitalization, Other)
  Sender: FDA-Public Use
  Company Number: US-009507513-2009-196762-NL

PATIENT

DRUGS (2)
  1. NUVARING [Suspect]
     Indication: CONTRACEPTION
     Dosage: CONTINUING: NO
     Route: 067
     Dates: start: 20060201, end: 20070601
  2. ADVIL [Concomitant]
     Indication: PAIN
     Dosage: 2 EVERY 6 HRS PRN FOR PAIN BREATHING
     Dates: start: 20070601

REACTIONS (9)
  - DEEP VEIN THROMBOSIS [None]
  - ANXIETY [None]
  - WEIGHT INCREASED [None]
  - OVARIAN CYST [None]
  - GASTRITIS [None]
  - HAEMATOCHEZIA [None]
  - HAEMANGIOMA OF LIVER [None]
  - PULMONARY EMBOLISM [None]
  - JOINT EFFUSION [None]
